FAERS Safety Report 13472203 (Version 2)
Quarter: 2017Q2

REPORT INFORMATION
  Report Type: Spontaneous
  Country: DE (occurrence: DE)
  Receive Date: 20170424
  Receipt Date: 20170602
  Transmission Date: 20170830
  Serious: Yes (Other)
  Sender: FDA-Public Use
  Company Number: DE-BAYER-2017-076942

PATIENT
  Sex: Female

DRUGS (1)
  1. MIRENA [Suspect]
     Active Substance: LEVONORGESTREL
     Dosage: 20 MCG/24HR, CONT
     Route: 015

REACTIONS (9)
  - Visual impairment [None]
  - Blindness transient [None]
  - Sarcoidosis [None]
  - Intracranial venous sinus thrombosis [None]
  - Neoplasm malignant [None]
  - Fear of disease [None]
  - Optic nerve injury [None]
  - Brain neoplasm [None]
  - CSF pressure increased [None]
